FAERS Safety Report 15691752 (Version 1)
Quarter: 2018Q4

REPORT INFORMATION
  Report Type: Spontaneous
  Country: US (occurrence: US)
  Receive Date: 20181205
  Receipt Date: 20181205
  Transmission Date: 20190205
  Serious: Yes (Other)
  Sender: FDA-Public Use
  Company Number: None

PATIENT
  Age: 71 Year
  Sex: Female
  Weight: 62.55 kg

DRUGS (15)
  1. CARVEDILOL. [Concomitant]
     Active Substance: CARVEDILOL
  2. GLUCOSAMINE 750MG MSN W/HYALURONIC ONE DAY [Concomitant]
  3. PROBIOTICS 10 DRAINS 20 BILLION MICRO ORGANISMS ONE DAY [Concomitant]
  4. JUICE PLUS (WHOLE FOOD IN A CAPSULE) [Concomitant]
  5. ESTROGEN COMPOUND HORMONES CREAM 2X DAILY [Concomitant]
  6. VITA B 100. 2X DAY [Concomitant]
  7. RESTASIS [Concomitant]
     Active Substance: CYCLOSPORINE
  8. COQ 1O. 100MG ONE DAY [Concomitant]
  9. GARLIC 500MG ONE DAY [Concomitant]
  10. BIOTEN 10,000MG ONE DAY [Concomitant]
  11. TUMERIC 500 MG ONE DAY [Concomitant]
  12. CLOPIDOGREL [Concomitant]
     Active Substance: CLOPIDOGREL BISULFATE
  13. VITA D 3 ONE DAY [Concomitant]
  14. EZETIMIBE 10 MG [Suspect]
     Active Substance: EZETIMIBE
     Indication: BLOOD CHOLESTEROL
     Dosage: ?          QUANTITY:1 TABLET(S);?
     Route: 048
     Dates: start: 20181031, end: 20181130
  15. PROGESTERONE. [Concomitant]
     Active Substance: PROGESTERONE

REACTIONS (5)
  - Pain in extremity [None]
  - Arthralgia [None]
  - Pain [None]
  - Peripheral swelling [None]
  - Tendon pain [None]

NARRATIVE: CASE EVENT DATE: 20181125
